FAERS Safety Report 11415251 (Version 1)
Quarter: 2015Q3

REPORT INFORMATION
  Report Type: Spontaneous
  Country: US (occurrence: None)
  Receive Date: 20150824
  Receipt Date: 20150824
  Transmission Date: 20151125
  Serious: Yes (Disabling)
  Sender: FDA-Public Use
  Company Number: None

PATIENT
  Age: 55 Year
  Sex: Female
  Weight: 86.18 kg

DRUGS (10)
  1. VIT B [Concomitant]
     Active Substance: VITAMINS
  2. CALCIUM [Concomitant]
     Active Substance: CALCIUM
  3. CIPRO [Suspect]
     Active Substance: CIPROFLOXACIN HYDROCHLORIDE
     Indication: ORAL INFECTION
     Route: 048
     Dates: start: 20141124, end: 20141219
  4. RANITIDINE [Concomitant]
     Active Substance: RANITIDINE\RANITIDINE HYDROCHLORIDE
  5. PANTOPRAZOLE [Concomitant]
     Active Substance: PANTOPRAZOLE SODIUM
  6. VITAMIN C [Concomitant]
     Active Substance: ASCORBIC ACID
  7. CELEBREX [Concomitant]
     Active Substance: CELECOXIB
  8. FENOFIBRATE. [Concomitant]
     Active Substance: FENOFIBRATE
  9. VERAPAMIL [Concomitant]
     Active Substance: VERAPAMIL HYDROCHLORIDE
  10. MG [Concomitant]
     Active Substance: MAGNESIUM

REACTIONS (2)
  - Tendonitis [None]
  - Drug ineffective [None]

NARRATIVE: CASE EVENT DATE: 20150823
